FAERS Safety Report 5202751-8 (Version None)
Quarter: 2006Q4

REPORT INFORMATION
  Report Type: 
  Country: None (occurrence: None)
  Receive Date: 20061016
  Receipt Date: 20060828
  Transmission Date: 20070319
  Serious: No
  Sender: FDA-Public Use
  Company Number: 2006SP003143

PATIENT
  Age: 48 Year
  Sex: Female
  Weight: 88.4514 kg

DRUGS (8)
  1. LUNESTA [Suspect]
     Indication: INSOMNIA
     Dosage: 3 MG;PRN;ORAL
     Route: 048
     Dates: start: 20050101
  2. ESTRADIOL [Concomitant]
  3. ALLEGRA [Concomitant]
  4. HYDROCHLOROTHIAZIDE [Concomitant]
  5. KLONOPIN [Concomitant]
  6. WELLBUTRIN [Concomitant]
  7. METOPROLOL SUCCINATE [Concomitant]
  8. FOLIC ACID [Concomitant]

REACTIONS (1)
  - DYSGEUSIA [None]
